FAERS Safety Report 9471073 (Version 1)
Quarter: 2013Q3

REPORT INFORMATION
  Report Type: Spontaneous
  Country: US (occurrence: None)
  Receive Date: 20130816
  Receipt Date: 20130816
  Transmission Date: 20140515
  Serious: Yes (Hospitalization)
  Sender: FDA-Public Use
  Company Number: 1847950

PATIENT
  Age: 52 Year
  Sex: Male

DRUGS (1)
  1. DOBUTAMINE [Suspect]
     Indication: STRESS ECHOCARDIOGRAM

REACTIONS (4)
  - Stress cardiomyopathy [None]
  - Abdominal pain [None]
  - Electrocardiogram T wave inversion [None]
  - Electrocardiogram ST segment elevation [None]
